FAERS Safety Report 19088841 (Version 5)
Quarter: 2021Q3

REPORT INFORMATION
  Report Type: Spontaneous
  Country: DE (occurrence: DE)
  Receive Date: 20210403
  Receipt Date: 20210812
  Transmission Date: 20211014
  Serious: Yes (Hospitalization, Other)
  Sender: FDA-Public Use
  Company Number: DE-AUROBINDO-AUR-APL-2021-013193

PATIENT
  Age: 65 Year
  Sex: Female
  Weight: 107 kg

DRUGS (14)
  1. VALSARTAN. [Suspect]
     Active Substance: VALSARTAN
     Indication: HYPERTENSION
     Dosage: 1 DOSAGE FORM, TWO TIMES A DAY
     Route: 065
  2. VALSARTAN. [Suspect]
     Active Substance: VALSARTAN
     Dosage: 320 MILLIGRAM, ONCE A DAY
     Route: 065
     Dates: start: 20131219
  3. XYLOCAINE [Concomitant]
     Active Substance: LIDOCAINE HYDROCHLORIDE
     Indication: ENDOSCOPY UPPER GASTROINTESTINAL TRACT
     Dosage: UNK
     Route: 065
     Dates: start: 201709
  4. XYLOCAINE [Concomitant]
     Active Substance: LIDOCAINE HYDROCHLORIDE
     Dosage: UNK
     Route: 065
     Dates: start: 202010
  5. VALSARTAN. [Suspect]
     Active Substance: VALSARTAN
     Dosage: 240 MILLIGRAM, ONCE A DAY
     Route: 065
  6. VALSARTAN 1A PHARMA [Suspect]
     Active Substance: VALSARTAN
     Dosage: 320 MILLIGRAM
     Route: 065
     Dates: start: 201507, end: 201512
  7. AMLODIPINE [Concomitant]
     Active Substance: AMLODIPINE BESYLATE
     Indication: PRODUCT USED FOR UNKNOWN INDICATION
     Dosage: UNK, ONCE A DAY(BID,1X 5 MG )
     Route: 065
  8. PROPOFOL. [Concomitant]
     Active Substance: PROPOFOL
     Indication: ENDOSCOPY UPPER GASTROINTESTINAL TRACT
     Dosage: 120 MILLIGRAM
     Route: 042
     Dates: start: 201709
  9. VALSARTAN. [Suspect]
     Active Substance: VALSARTAN
     Dosage: 2 DOSAGE FORM, ONCE A DAY(MORNING AND EVENING)
     Route: 065
  10. VALSARTAN 1A PHARMA [Suspect]
     Active Substance: VALSARTAN
     Indication: HYPERTENSION
     Dosage: 320 MILLIGRAM
     Route: 065
     Dates: start: 201501, end: 201504
  11. DORMICUM [Concomitant]
     Indication: ENDOSCOPY UPPER GASTROINTESTINAL TRACT
     Dosage: 3 MILLIGRAM
     Route: 042
     Dates: start: 202010
  12. IBUPROFEN. [Concomitant]
     Active Substance: IBUPROFEN
     Indication: PRODUCT USED FOR UNKNOWN INDICATION
     Dosage: UNK
     Route: 065
  13. PROVAS [Suspect]
     Active Substance: VALSARTAN
     Indication: HYPERTENSION
     Dosage: 2 DOSAGE FORM, ONCE A DAY(1 DF, BID )
     Route: 065
     Dates: start: 2003
  14. VERAPAMIL [Suspect]
     Active Substance: VERAPAMIL HYDROCHLORIDE
     Indication: PRODUCT USED FOR UNKNOWN INDICATION
     Dosage: UNK, ONCE A DAY(BID, 0.5X 240 MG )
     Route: 065

REACTIONS (24)
  - Spondylitis [Unknown]
  - Back pain [Unknown]
  - Headache [Unknown]
  - Microcytic anaemia [Unknown]
  - Quality of life decreased [Unknown]
  - Limb discomfort [Unknown]
  - Renal cyst [Unknown]
  - Gastric mucosa erythema [Unknown]
  - Pain in extremity [Unknown]
  - Lordosis [Unknown]
  - Body fat disorder [Unknown]
  - Osteochondrosis [Unknown]
  - Abdominal discomfort [Unknown]
  - Helicobacter gastritis [Unknown]
  - Arthropathy [Unknown]
  - Emotional distress [Unknown]
  - Complication associated with device [Recovered/Resolved]
  - Anxiety [Unknown]
  - Myalgia [Unknown]
  - Vomiting [Unknown]
  - Pyrexia [Unknown]
  - Ill-defined disorder [Unknown]
  - Chills [Unknown]
  - Product contamination [Unknown]

NARRATIVE: CASE EVENT DATE: 201710
